FAERS Safety Report 20125087 (Version 3)
Quarter: 2022Q1

REPORT INFORMATION
  Report Type: Report from Study
  Country: ES (occurrence: ES)
  Receive Date: 20211129
  Receipt Date: 20220127
  Transmission Date: 20220423
  Serious: Yes (Hospitalization)
  Sender: FDA-Public Use
  Company Number: ES-PFIZER INC-202101632954

PATIENT
  Age: 83 Year
  Sex: Male
  Weight: 59 kg

DRUGS (3)
  1. PACLITAXEL [Suspect]
     Active Substance: PACLITAXEL
     Indication: Anal squamous cell carcinoma
     Dosage: 80 MILLIGRAM/SQ. METER,DAY 1, 8, 15
     Route: 042
     Dates: start: 20210708, end: 20211013
  2. CARBOPLATIN [Suspect]
     Active Substance: CARBOPLATIN
     Indication: Anal squamous cell carcinoma
     Dosage: UNK MILLIGRAM/SQ. METER; AUC 5 Q 4 W
     Route: 042
     Dates: start: 20210708, end: 20211013
  3. INVESTIGATIONAL PRODUCT [Suspect]
     Active Substance: INVESTIGATIONAL PRODUCT
     Indication: Anal squamous cell carcinoma
     Dosage: UNK UNK, CYCLIC (Q4W)
     Route: 042
     Dates: start: 20210708, end: 20211013

REACTIONS (1)
  - Hypercalcaemia [Recovered/Resolved]

NARRATIVE: CASE EVENT DATE: 20211026
